FAERS Safety Report 10537603 (Version 1)
Quarter: 2014Q4

REPORT INFORMATION
  Report Type: Spontaneous
  Country: US (occurrence: None)
  Receive Date: 20141022
  Receipt Date: 20141022
  Transmission Date: 20150529
  Serious: Yes (Hospitalization)
  Sender: FDA-Public Use
  Company Number: None

PATIENT
  Age: 65 Year
  Sex: Female
  Weight: 88.5 kg

DRUGS (3)
  1. BUPIVACAINE-EPINEPHRINE [Suspect]
     Active Substance: BUPIVACAINE\EPINEPHRINE
     Indication: PAIN PROPHYLAXIS
     Dosage: 30 ML ONCE LOCAL INFILTRATION
  2. EXPAREL [Suspect]
     Active Substance: BUPIVACAINE
     Indication: PAIN PROPHYLAXIS
     Dosage: 266MG ONCE LOCAL INFILTRATION
  3. KETOROLAC [Concomitant]
     Active Substance: KETOROLAC\KETOROLAC TROMETHAMINE

REACTIONS (2)
  - Toxicity to various agents [None]
  - Electrocardiogram T wave inversion [None]

NARRATIVE: CASE EVENT DATE: 20140818
